FAERS Safety Report 16049325 (Version 3)
Quarter: 2021Q2

REPORT INFORMATION
  Report Type: Spontaneous
  Country: US (occurrence: US)
  Receive Date: 20190307
  Receipt Date: 20210401
  Transmission Date: 20210716
  Serious: Yes (Hospitalization, Other)
  Sender: FDA-Public Use
  Company Number: US-VERTEX PHARMACEUTICALS-2019-001900

PATIENT
  Age: 20 Year
  Sex: Male

DRUGS (18)
  1. AZITHROMYCIN ANHYDROUS. [Concomitant]
     Active Substance: AZITHROMYCIN ANHYDROUS
  2. PANTOPRAZOLE [Concomitant]
     Active Substance: PANTOPRAZOLE
  3. ENSURE [Concomitant]
     Active Substance: AMINO ACIDS\DEXTROSE\ELECTROLYTES NOS\SOYBEAN OIL\VITAMINS
  4. LORATADINE. [Concomitant]
     Active Substance: LORATADINE
  5. VITAMIN E                          /00110501/ [Concomitant]
     Active Substance: TOCOPHEROL
  6. SYMDEKO [Suspect]
     Active Substance: IVACAFTOR\TEZACAFTOR
     Indication: CYSTIC FIBROSIS
     Dosage: 100 MG TEZACAFTOR/150 MG IVACAFTOR AM; 150 MG IVACAFTOR PM
     Route: 048
     Dates: start: 201807
  7. CYPROHEPTADINE. [Concomitant]
     Active Substance: CYPROHEPTADINE
  8. DIPHENHYDRAMINE. [Concomitant]
     Active Substance: DIPHENHYDRAMINE
  9. BACTRIM [Suspect]
     Active Substance: SULFAMETHOXAZOLE\TRIMETHOPRIM
     Indication: PRODUCT USED FOR UNKNOWN INDICATION
     Route: 065
  10. MONTELUKAST [Concomitant]
     Active Substance: MONTELUKAST SODIUM
  11. ACETAMINOPHEN. [Concomitant]
     Active Substance: ACETAMINOPHEN
  12. CALCIUM [Concomitant]
     Active Substance: CALCIUM
  13. SCANDISHAKE MIX [Concomitant]
     Active Substance: DIETARY SUPPLEMENT
  14. ALBUTEROL                          /00139501/ [Concomitant]
     Active Substance: ALBUTEROL
  15. VITAMIN D3 [Concomitant]
     Active Substance: CHOLECALCIFEROL
  16. PULMOZYME [Concomitant]
     Active Substance: DORNASE ALFA
  17. DULERA [Concomitant]
     Active Substance: FORMOTEROL FUMARATE DIHYDRATE\MOMETASONE FUROATE
  18. SODIUM CHLORIDE. [Concomitant]
     Active Substance: SODIUM CHLORIDE

REACTIONS (2)
  - Drug-induced liver injury [Unknown]
  - Hospitalisation [Unknown]

NARRATIVE: CASE EVENT DATE: 201902
